FAERS Safety Report 7411965-8 (Version None)
Quarter: 2011Q2

REPORT INFORMATION
  Report Type: 
  Country: None (occurrence: None)
  Receive Date: 20110404
  Receipt Date: 20110318
  Transmission Date: 20111010
  Serious: Yes (Other)
  Sender: FDA-Public Use
  Company Number: ENTC2011-0100

PATIENT
  Age: 74 Year
  Sex: Male

DRUGS (1)
  1. STALEVO 100 [Suspect]
     Indication: PARKINSON'S DISEASE
     Dosage: 3 TABLETS (100/25/200 MG) PER DAY ORAL
     Route: 048
     Dates: end: 20110201

REACTIONS (5)
  - GAIT DISTURBANCE [None]
  - HEARING IMPAIRED [None]
  - TREMOR [None]
  - HEADACHE [None]
  - VISUAL IMPAIRMENT [None]
